FAERS Safety Report 6749479-0 (Version None)
Quarter: 2010Q2

REPORT INFORMATION
  Report Type: 
  Country: None (occurrence: None)
  Receive Date: 20100601
  Receipt Date: 20100526
  Transmission Date: 20101027
  Serious: Yes (Life-Threatening)
  Sender: FDA-Public Use
  Company Number: JP-BAYER-201011147BYL

PATIENT
  Age: 76 Year
  Sex: Male
  Weight: 68 kg

DRUGS (7)
  1. NEXAVAR [Suspect]
     Indication: HEPATIC NEOPLASM MALIGNANT
     Dosage: TOTAL DAILY DOSE: 800 MG  UNIT DOSE: 200 MG
     Route: 048
     Dates: start: 20100223, end: 20100326
  2. OLMESARTAN MEDOXOMIL [Concomitant]
     Dosage: UNIT DOSE: 10 MG
     Route: 048
     Dates: start: 20100302, end: 20100414
  3. MAINTATE [Concomitant]
     Dosage: UNIT DOSE: 5 MG
     Route: 048
  4. GLAKAY [Concomitant]
     Route: 048
  5. TAKEPRON [Concomitant]
     Dosage: UNIT DOSE: 30 MG
     Route: 048
  6. URSO 250 [Concomitant]
     Dosage: UNIT DOSE: 100 MG
     Route: 048
  7. MUCOSOLVAN [Concomitant]
     Route: 048

REACTIONS (4)
  - HEPATIC ENCEPHALOPATHY [None]
  - HYPERTENSION [None]
  - LIVER DISORDER [None]
  - PALMAR-PLANTAR ERYTHRODYSAESTHESIA SYNDROME [None]
